FAERS Safety Report 5431884-6 (Version None)
Quarter: 2007Q3

REPORT INFORMATION
  Report Type: 
  Country: None (occurrence: None)
  Receive Date: 20070731
  Receipt Date: 20070420
  Transmission Date: 20080115
  Serious: No
  Sender: FDA-Public Use
  Company Number: US200705004294

PATIENT
  Age: 63 Year
  Sex: Male
  Weight: 106.6 kg

DRUGS (6)
  1. BYETTA [Suspect]
     Indication: TYPE 2 DIABETES MELLITUS
     Dosage: 5 UG, 2/D, SUBCUTANEOUS
     Route: 058
     Dates: start: 20060101, end: 20060101
  2. BYETTA [Suspect]
     Dosage: 10 UG, 2/D, SUBCUTANEOUS
     Route: 058
     Dates: start: 20060101
  3. METFORMIN HCL [Concomitant]
  4. AVANDIA [Concomitant]
  5. VYTORIN [Concomitant]
  6. COZAAR [Concomitant]

REACTIONS (2)
  - BLISTER [None]
  - BLOOD GLUCOSE INCREASED [None]
